FAERS Safety Report 10097210 (Version 1)
Quarter: 2014Q2

REPORT INFORMATION
  Report Type: Report from Study
  Country: US (occurrence: US)
  Receive Date: 20140422
  Receipt Date: 20140422
  Transmission Date: 20141212
  Serious: Yes (Other)
  Sender: FDA-Public Use
  Company Number: PHEH2014US007702

PATIENT
  Sex: Female

DRUGS (1)
  1. GILENYA [Suspect]
     Indication: MULTIPLE SCLEROSIS
     Dosage: 0.5 MG, QD
     Route: 048
     Dates: start: 201104

REACTIONS (5)
  - Paraparesis [Unknown]
  - Ataxia [Unknown]
  - Fibromyalgia [Unknown]
  - Gait disturbance [Unknown]
  - Migraine [Unknown]
